FAERS Safety Report 17929674 (Version 2)
Quarter: 2020Q2

REPORT INFORMATION
  Report Type: Spontaneous
  Country: US (occurrence: US)
  Receive Date: 20200623
  Receipt Date: 20200624
  Transmission Date: 20200714
  Serious: No
  Sender: FDA-Public Use
  Company Number: US-PFIZER INC-2019135315

PATIENT
  Age: 61 Year
  Sex: Female
  Weight: 84.82 kg

DRUGS (4)
  1. LYRICA [Suspect]
     Active Substance: PREGABALIN
     Indication: ANXIETY
     Dosage: 200 MG, DAILY (ONE CAPSULE BY MOUTH IN THE MORNING AND TAKE THREE BY MOUTH AT BEDTIME)
     Route: 048
  2. LYRICA [Suspect]
     Active Substance: PREGABALIN
     Indication: NEUROPATHY PERIPHERAL
  3. LYRICA [Suspect]
     Active Substance: PREGABALIN
     Indication: SCIATICA
     Dosage: 200 MG, DAILY [50 MG IN THE MORNING AND 150 MG AT BEDTIME]
     Route: 048
     Dates: start: 20190225
  4. LYRICA [Suspect]
     Active Substance: PREGABALIN
     Indication: BACK PAIN
     Dosage: 200 MG, DAILY (150 MG [1 CAPSULE] AT BEDTIME, 50 MG [1 CAPSULE] AT BEDTIME)
     Route: 048

REACTIONS (3)
  - Hypoacusis [Unknown]
  - Body height decreased [Unknown]
  - Intentional product use issue [Unknown]

NARRATIVE: CASE EVENT DATE: 20200618
